FAERS Safety Report 17902639 (Version 3)
Quarter: 2020Q4

REPORT INFORMATION
  Report Type: Report from Study
  Country: US (occurrence: US)
  Receive Date: 20200617
  Receipt Date: 20201107
  Transmission Date: 20210113
  Serious: No
  Sender: FDA-Public Use
  Company Number: NVSC2020US167402

PATIENT
  Age: 63 Year
  Sex: Female
  Weight: 50.8 kg

DRUGS (2)
  1. ENTRESTO [Suspect]
     Active Substance: SACUBITRIL\VALSARTAN
     Indication: CARDIAC FAILURE CONGESTIVE
     Dosage: UNK
     Route: 065
  2. ENTRESTO [Suspect]
     Active Substance: SACUBITRIL\VALSARTAN
     Dosage: 1 DF, BID
     Route: 048
     Dates: start: 202006

REACTIONS (11)
  - Memory impairment [Unknown]
  - Incorrect dose administered [Unknown]
  - Pain [Unknown]
  - Hypoaesthesia [Unknown]
  - Limb discomfort [Unknown]
  - Confusional state [Unknown]
  - Hypertension [Unknown]
  - Product dose omission issue [Unknown]
  - Paraesthesia [Unknown]
  - Psychomotor hyperactivity [Unknown]
  - Haemodialysis complication [Unknown]

NARRATIVE: CASE EVENT DATE: 20200806
